FAERS Safety Report 4505136-2 (Version None)
Quarter: 2004Q4

REPORT INFORMATION
  Report Type: 
  Country: None (occurrence: None)
  Receive Date: 20041020
  Receipt Date: 20031125
  Transmission Date: 20050328
  Serious: Yes (Death)
  Sender: FDA-Public Use
  Company Number: 2003184013US

PATIENT
  Age: 3 Year
  Sex: Male

DRUGS (5)
  1. GENOTROPIN [Suspect]
     Indication: GROWTH HORMONE DEFICIENCY
     Dates: start: 20030601
  2. VIGABATRIN [Concomitant]
  3. THYROID HORMONES [Concomitant]
  4. CORTEF [Concomitant]
  5. CEFTIN [Concomitant]

REACTIONS (1)
  - DEATH [None]
